FAERS Safety Report 25243928 (Version 1)
Quarter: 2025Q2

REPORT INFORMATION
  Report Type: Spontaneous
  Country: US (occurrence: US)
  Receive Date: 20250428
  Receipt Date: 20250428
  Transmission Date: 20250716
  Serious: No
  Sender: ALEXION PHARMACEUTICALS
  Company Number: US-AstraZeneca-CH-00855839A

PATIENT
  Age: 26 Year

DRUGS (1)
  1. KOSELUGO [Suspect]
     Active Substance: SELUMETINIB
     Indication: Neurofibromatosis

REACTIONS (5)
  - Off label use [Unknown]
  - Dyspnoea [Unknown]
  - Chest pain [Unknown]
  - Dermatitis acneiform [Unknown]
  - Blood creatine phosphokinase increased [Unknown]
